FAERS Safety Report 6126203-6 (Version None)
Quarter: 2009Q1

REPORT INFORMATION
  Report Type: 
  Country: None (occurrence: None)
  Receive Date: 20090320
  Receipt Date: 20090316
  Transmission Date: 20090719
  Serious: Yes (Other)
  Sender: FDA-Public Use
  Company Number: B0565124A

PATIENT
  Age: 70 Year
  Sex: Male
  Weight: 59 kg

DRUGS (6)
  1. PAXIL [Suspect]
     Indication: DEPRESSION
     Dosage: 20MG THREE TIMES PER DAY
     Route: 048
     Dates: start: 20070905, end: 20070921
  2. DIAZEPAM [Concomitant]
     Route: 065
  3. GOODMIN [Concomitant]
     Route: 048
  4. ASPARA K [Concomitant]
     Route: 065
  5. NELBON [Concomitant]
     Route: 048
  6. STOMILASE [Concomitant]
     Route: 048

REACTIONS (3)
  - AGGRESSION [None]
  - DELUSIONAL DISORDER, EROTOMANIC TYPE [None]
  - IRRITABILITY [None]
